FAERS Safety Report 13798456 (Version 2)
Quarter: 2017Q3

REPORT INFORMATION
  Report Type: Spontaneous
  Country: BR (occurrence: BR)
  Receive Date: 20170727
  Receipt Date: 20170727
  Transmission Date: 20171127
  Serious: Yes (Hospitalization, Other)
  Sender: FDA-Public Use
  Company Number: BR-CIPLA LTD.-2017BR12704

PATIENT

DRUGS (5)
  1. FENOBARBITAL [Concomitant]
     Active Substance: PHENOBARBITAL
     Dosage: UNK
     Route: 065
  2. TOPIRAMATO [Concomitant]
     Active Substance: TOPIRAMATE
     Dosage: UNK
     Route: 065
  3. LAMOTRIGINE. [Suspect]
     Active Substance: LAMOTRIGINE
     Dosage: UNK
     Route: 065
  4. VIMPAT [Suspect]
     Active Substance: LACOSAMIDE
     Dosage: UNK, BID
     Route: 065
  5. LEVETIRACETAM. [Suspect]
     Active Substance: LEVETIRACETAM
     Indication: EPILEPSY
     Dosage: 1000 MG, TID

REACTIONS (4)
  - Neurological decompensation [Recovered/Resolved]
  - Hypothyroidism [Not Recovered/Not Resolved]
  - Hypersensitivity [Unknown]
  - Condition aggravated [Not Recovered/Not Resolved]

NARRATIVE: CASE EVENT DATE: 201601
